FAERS Safety Report 24578867 (Version 2)
Quarter: 2024Q4

REPORT INFORMATION
  Report Type: Report from Study
  Country: US (occurrence: US)
  Receive Date: 20241105
  Receipt Date: 20241122
  Transmission Date: 20250115
  Serious: Yes (Hospitalization)
  Sender: ABBVIE
  Company Number: US-ABBVIE-5984673

PATIENT
  Age: 67 Year
  Sex: Male

DRUGS (2)
  1. CREON [Suspect]
     Active Substance: PANCRELIPASE AMYLASE\PANCRELIPASE LIPASE\PANCRELIPASE PROTEASE
     Indication: Pancreatic failure
     Dosage: 2 CAP EACH MEAL AND 1 SNACK?FORM STRENGTH: 12000 UNIT
     Route: 048
     Dates: start: 202406, end: 202410
  2. CREON [Suspect]
     Active Substance: PANCRELIPASE AMYLASE\PANCRELIPASE LIPASE\PANCRELIPASE PROTEASE
     Indication: Pancreatic failure
     Dosage: FORM STRENGTH: 12000 UNIT?2 CAP EACH MEAL AND 1 PER SNACK
     Route: 048
     Dates: start: 202410

REACTIONS (5)
  - Failure to thrive [Recovering/Resolving]
  - Weight decreased [Recovering/Resolving]
  - Aphonia [Not Recovered/Not Resolved]
  - Dumping syndrome [Recovering/Resolving]
  - Pneumonia aspiration [Recovered/Resolved]

NARRATIVE: CASE EVENT DATE: 20240101
